FAERS Safety Report 13065108 (Version 1)
Quarter: 2016Q4

REPORT INFORMATION
  Report Type: Spontaneous
  Country: GB (occurrence: GB)
  Receive Date: 20161227
  Receipt Date: 20161227
  Transmission Date: 20170207
  Serious: Yes (Hospitalization)
  Sender: FDA-Public Use
  Company Number: GB-TEVA-722128ACC

PATIENT
  Age: 77 Year
  Sex: Female

DRUGS (13)
  1. LEVOTHYROXINE. [Concomitant]
     Active Substance: LEVOTHYROXINE
  2. NITROFURANTOIN. [Concomitant]
     Active Substance: NITROFURANTOIN
  3. RANITIDINE. [Concomitant]
     Active Substance: RANITIDINE
  4. SIMVASTATIN. [Concomitant]
     Active Substance: SIMVASTATIN
  5. FUROSEMIDE. [Concomitant]
     Active Substance: FUROSEMIDE
  6. FORTISIP [Concomitant]
     Active Substance: CARBOHYDRATES\FATTY ACIDS\MINERALS\PROTEIN\VITAMINS
  7. GABAPENTIN. [Concomitant]
     Active Substance: GABAPENTIN
     Indication: NEURALGIA
     Dosage: 300MG IN THE MORNING AND LUNCH AND 600MG AT NIGHT.
  8. METFORMIN [Concomitant]
     Active Substance: METFORMIN HYDROCHLORIDE
     Indication: TYPE 2 DIABETES MELLITUS
     Dosage: 500 MILLIGRAM DAILY;
  9. SOLIFENACIN [Concomitant]
     Active Substance: SOLIFENACIN
  10. PREDNISOLONE. [Suspect]
     Active Substance: PREDNISOLONE
     Indication: ARTHRALGIA
     Dosage: MAINTENANCE DOSE.
     Route: 048
     Dates: start: 20161001
  11. ASPIRIN. [Concomitant]
     Active Substance: ASPIRIN
  12. BECLOMETASONE [Concomitant]
     Active Substance: BECLOMETHASONE DIPROPIONATE
  13. SALBUTAMOL [Concomitant]
     Active Substance: ALBUTEROL

REACTIONS (2)
  - Decubitus ulcer [Not Recovered/Not Resolved]
  - Impaired healing [Not Recovered/Not Resolved]

NARRATIVE: CASE EVENT DATE: 20161001
